FAERS Safety Report 19770441 (Version 1)
Quarter: 2021Q3

REPORT INFORMATION
  Report Type: Spontaneous
  Country: US (occurrence: US)
  Receive Date: 20210901
  Receipt Date: 20210901
  Transmission Date: 20211014
  Serious: Yes (Hospitalization)
  Sender: FDA-Public Use
  Company Number: US-BIOVITRUM-2021US7869

PATIENT
  Sex: Female
  Weight: 5 kg

DRUGS (4)
  1. POLY?VI?SOL [Concomitant]
     Active Substance: VITAMINS
     Dosage: 250?50/ML DROPS
  2. SYNAGIS [Suspect]
     Active Substance: PALIVIZUMAB
     Indication: PREMATURE BABY
  3. FAMOTIDINE. [Concomitant]
     Active Substance: FAMOTIDINE
     Dosage: 100 PERCENT POWDER
  4. SYNAGIS [Suspect]
     Active Substance: PALIVIZUMAB
     Indication: LOW BIRTH WEIGHT BABY
     Route: 030

REACTIONS (2)
  - Constipation [Unknown]
  - Infantile spitting up [Unknown]
